FAERS Safety Report 12312699 (Version 1)
Quarter: 2016Q2

REPORT INFORMATION
  Report Type: Spontaneous
  Country: US (occurrence: None)
  Receive Date: 20160427
  Receipt Date: 20160427
  Transmission Date: 20160815
  Serious: No
  Sender: FDA-Public Use
  Company Number: None

PATIENT
  Age: 59 Year
  Sex: Female

DRUGS (1)
  1. LEFLUNOMIDE TAB 10MG [Suspect]
     Active Substance: LEFLUNOMIDE
     Dosage: MG  QD ORAL
     Route: 048

REACTIONS (1)
  - Sinusitis [None]

NARRATIVE: CASE EVENT DATE: 20160426
